FAERS Safety Report 4574199-0 (Version None)
Quarter: 2005Q1

REPORT INFORMATION
  Report Type: 
  Country: None (occurrence: None)
  Receive Date: 20050208
  Receipt Date: 20050202
  Transmission Date: 20050727
  Serious: Yes (Hospitalization)
  Sender: FDA-Public Use
  Company Number: 200510405FR

PATIENT
  Age: 68 Year
  Sex: Male

DRUGS (7)
  1. AMAREL [Suspect]
     Indication: DIABETES MELLITUS
     Route: 048
     Dates: end: 20041212
  2. TRIATEC [Suspect]
     Indication: ESSENTIAL HYPERTENSION
     Route: 048
  3. ALDACTONE [Suspect]
     Indication: ESSENTIAL HYPERTENSION
     Route: 048
     Dates: start: 20020101, end: 20041213
  4. DETENSIEL [Suspect]
     Indication: ESSENTIAL HYPERTENSION
     Route: 048
  5. DEROXAT [Suspect]
     Indication: DYSTHYMIC DISORDER
     Route: 048
  6. TRINIPATCH [Suspect]
     Route: 061
     Dates: start: 20020101, end: 20041213
  7. ZOCOR [Concomitant]

REACTIONS (5)
  - CAROTID ARTERY STENOSIS [None]
  - DIABETES MELLITUS INADEQUATE CONTROL [None]
  - FALL [None]
  - HOT FLUSH [None]
  - ORTHOSTATIC HYPOTENSION [None]
